FAERS Safety Report 11889102 (Version 2)
Quarter: 2016Q1

REPORT INFORMATION
  Report Type: Spontaneous
  Country: US (occurrence: US)
  Receive Date: 20160105
  Receipt Date: 20160129
  Transmission Date: 20160526
  Serious: No
  Sender: FDA-Public Use
  Company Number: US-ASTRAZENECA-2016SE00213

PATIENT
  Sex: Female

DRUGS (1)
  1. NEXIUM 24HR [Suspect]
     Active Substance: ESOMEPRAZOLE MAGNESIUM
     Indication: CHEST PAIN
     Dosage: DOSE UNKNOWN, EVERY DAY
     Route: 048

REACTIONS (5)
  - Product use issue [Unknown]
  - Product quality issue [Unknown]
  - Malaise [Unknown]
  - Vomiting [Unknown]
  - Diarrhoea [Unknown]
